FAERS Safety Report 24019694 (Version 1)
Quarter: 2024Q2

REPORT INFORMATION
  Report Type: Spontaneous
  Country: FR (occurrence: FR)
  Receive Date: 20240627
  Receipt Date: 20240627
  Transmission Date: 20240716
  Serious: Yes (Hospitalization)
  Sender: FDA-Public Use
  Company Number: None

PATIENT
  Age: 92 Year
  Sex: Female

DRUGS (13)
  1. TAMSULOSIN [Interacting]
     Active Substance: TAMSULOSIN
     Indication: Product used for unknown indication
     Dosage: 0-0-1, TAMSULOSIN HYDROCHLORIDE
     Route: 048
  2. MIANSERIN [Concomitant]
     Active Substance: MIANSERIN
     Indication: Cognitive disorder
     Dosage: 0-0-1 30MG, MIANSERIN (HYDROCHLORIDE)
     Route: 048
  3. POTASSIUM BITARTRATE\SODIUM BICARBONATE [Concomitant]
     Active Substance: POTASSIUM BITARTRATE\SODIUM BICARBONATE
     Indication: Constipation
     Dosage: 0-0-1, EDUCTYL ADULTS, EFFERVESCENT SUPPOSITORY
     Route: 054
  4. LANTUS [Interacting]
     Active Substance: INSULIN GLARGINE
     Indication: Type 2 diabetes mellitus
     Dosage: 10 UI
     Route: 058
     Dates: end: 20161014
  5. PAROXETINE MESYLATE [Concomitant]
     Active Substance: PAROXETINE MESYLATE
     Indication: Product used for unknown indication
     Dosage: 1/2
     Route: 048
  6. BENSERAZIDE HYDROCHLORIDE\LEVODOPA [Interacting]
     Active Substance: BENSERAZIDE HYDROCHLORIDE\LEVODOPA
     Indication: Parkinson^s disease
     Dosage: 2-0-1, 125 DISPERSIBLE (100 MG/25 MG), SCORED TABLET FOR ORAL SUSPENSION
     Route: 048
     Dates: end: 20161018
  7. IVABRADINE [Interacting]
     Active Substance: IVABRADINE
     Indication: Product used for unknown indication
     Route: 048
  8. NOVORAPID [Interacting]
     Active Substance: INSULIN ASPART
     Indication: Type 2 diabetes mellitus
     Route: 058
     Dates: end: 20161014
  9. DUPHALAC [Concomitant]
     Active Substance: LACTULOSE
     Indication: Constipation
     Dosage: 0-0-1
     Route: 048
  10. CHOLECALCIFEROL [Concomitant]
     Active Substance: CHOLECALCIFEROL
     Indication: Product used for unknown indication
     Route: 048
  11. DOLIPRANE [Concomitant]
     Active Substance: ACETAMINOPHEN
     Indication: Pain
     Route: 048
  12. PREVISCAN [Concomitant]
     Indication: Pulmonary embolism
     Dosage: 1/2, SCORED TABLET
     Route: 048
  13. ESOMEPRAZOLE [Concomitant]
     Active Substance: ESOMEPRAZOLE
     Indication: Product used for unknown indication
     Route: 048

REACTIONS (3)
  - Orthostatic hypotension [Recovering/Resolving]
  - Malaise [Recovered/Resolved]
  - International normalised ratio increased [Recovered/Resolved]

NARRATIVE: CASE EVENT DATE: 20161002
